FAERS Safety Report 5574327-4 (Version None)
Quarter: 2007Q4

REPORT INFORMATION
  Report Type: 
  Country: None (occurrence: None)
  Receive Date: 20071221
  Receipt Date: 20071212
  Transmission Date: 20080405
  Serious: Yes (Hospitalization, Other)
  Sender: FDA-Public Use
  Company Number: 021534

PATIENT
  Age: 45 Year
  Sex: Female
  Weight: 75.7 kg

DRUGS (2)
  1. NORETHINDRONE ACETATE AND ETHINYL ESTRADIOL [Suspect]
     Indication: UTERINE HAEMORRHAGE
     Dosage: ORAL
     Route: 048
     Dates: start: 20051201
  2. ASPRIN (ACETYLSALICYLIC ACID) [Concomitant]

REACTIONS (7)
  - ANXIETY [None]
  - ASTHENIA [None]
  - DEEP VEIN THROMBOSIS [None]
  - DRUG ADMINISTRATION ERROR [None]
  - FATIGUE [None]
  - INSOMNIA [None]
  - PULMONARY EMBOLISM [None]
